FAERS Safety Report 23294822 (Version 2)
Quarter: 2024Q1

REPORT INFORMATION
  Report Type: Spontaneous
  Country: CN (occurrence: CN)
  Receive Date: 20231213
  Receipt Date: 20240215
  Transmission Date: 20240410
  Serious: Yes (Life-Threatening)
  Sender: FDA-Public Use
  Company Number: CN-ADR-3502031025890202303206

PATIENT

DRUGS (4)
  1. TRILACICLIB [Suspect]
     Active Substance: TRILACICLIB
     Dosage: 450 MG
     Route: 042
     Dates: start: 20231105, end: 20231105
  2. ETOPOSIDE [Suspect]
     Active Substance: ETOPOSIDE
     Indication: Lung neoplasm malignant
     Dosage: .186 G
     Route: 042
     Dates: start: 20231105, end: 20231108
  3. ATEZOLIZUMAB [Suspect]
     Active Substance: ATEZOLIZUMAB
     Indication: Lung neoplasm malignant
     Dosage: 1200 MG
     Route: 042
     Dates: start: 20231105, end: 20231105
  4. CISPLATIN [Suspect]
     Active Substance: CISPLATIN
     Indication: Lung neoplasm malignant
     Dosage: 140 MG
     Route: 042
     Dates: start: 20231105, end: 20231106

REACTIONS (2)
  - Neutrophil count decreased [Recovering/Resolving]
  - White blood cell count decreased [Recovering/Resolving]

NARRATIVE: CASE EVENT DATE: 20231120
